FAERS Safety Report 5650227-6 (Version None)
Quarter: 2008Q1

REPORT INFORMATION
  Report Type: 
  Country: None (occurrence: None)
  Receive Date: 20080303
  Receipt Date: 20080215
  Transmission Date: 20080703
  Serious: Yes (Hospitalization)
  Sender: FDA-Public Use
  Company Number: S08-FRA-00745-01

PATIENT
  Sex: Male

DRUGS (3)
  1. ESCITALOPRAM [Suspect]
     Indication: DEPRESSION
     Dosage: 10 MG QD PO
     Route: 048
  2. ZALDIAR              (PARACETAMOL/TRAMADOL) [Concomitant]
  3. DICLOFENAC [Concomitant]

REACTIONS (2)
  - ANAEMIA [None]
  - GASTRIC ULCER [None]
